FAERS Safety Report 9823172 (Version 2)
Quarter: 2014Q1

REPORT INFORMATION
  Report Type: Report from Study
  Country: US (occurrence: US)
  Receive Date: 20140116
  Receipt Date: 20140313
  Transmission Date: 20141002
  Serious: Yes (Other)
  Sender: FDA-Public Use
  Company Number: PHEH2014US001190

PATIENT
  Sex: Male

DRUGS (15)
  1. TASIGNA [Suspect]
     Indication: CHRONIC MYELOID LEUKAEMIA
     Dosage: 400 MG, BID
     Route: 048
     Dates: start: 20131224, end: 20140224
  2. VITAMIN B12 [Concomitant]
     Dosage: UNK UKN, UNK
  3. AMLODIPINE [Concomitant]
     Dosage: UNK UKN, UNK
  4. ABTEI MAGNESIUM [Concomitant]
     Dosage: UNK UKN, UNK
  5. PLAVIX [Concomitant]
     Dosage: UNK UKN, UNK
  6. CRESTOR [Concomitant]
     Dosage: UNK UKN, UNK
  7. AVAPRO [Concomitant]
     Dosage: UNK UKN, UNK
  8. ALLOPURINOL [Concomitant]
     Dosage: UNK UKN, UNK
  9. ISOSORBIDE [Concomitant]
     Dosage: UNK UKN, UNK
  10. CARVEDILOL [Concomitant]
     Dosage: UNK UKN, UNK
  11. ASPIRIN [Concomitant]
     Dosage: UNK UKN, UNK
  12. IRON [Concomitant]
     Dosage: UNK UKN, UNK
  13. VIT D [Concomitant]
     Dosage: UNK UKN, UNK
  14. SLO-NIACIN [Concomitant]
     Dosage: UNK UKN, UNK
  15. CENTRUM SILVER [Concomitant]
     Dosage: UNK UKN, UNK

REACTIONS (3)
  - Electrocardiogram abnormal [Unknown]
  - Diarrhoea [Unknown]
  - Constipation [Unknown]
